FAERS Safety Report 4941614-X (Version None)
Quarter: 2006Q1

REPORT INFORMATION
  Report Type: 
  Country: None (occurrence: None)
  Receive Date: 20060308
  Receipt Date: 20060223
  Transmission Date: 20060701
  Serious: Yes (Other)
  Sender: FDA-Public Use
  Company Number: 2006026119

PATIENT
  Sex: Female
  Weight: 74 kg

DRUGS (2)
  1. LYRICA [Suspect]
     Indication: ILL-DEFINED DISORDER
     Dosage: 300 MG (150 MG, 2 IN 1 D),
     Dates: start: 20050101, end: 20060101
  2. EFFEXOR [Concomitant]

REACTIONS (3)
  - ABORTION SPONTANEOUS [None]
  - DRUG EXPOSURE DURING PREGNANCY [None]
  - ULTRASOUND ABDOMEN ABNORMAL [None]
